FAERS Safety Report 10365951 (Version 1)
Quarter: 2014Q3

REPORT INFORMATION
  Report Type: Spontaneous
  Country: US (occurrence: None)
  Receive Date: 20140804
  Receipt Date: 20140804
  Transmission Date: 20150326
  Serious: Yes (Disabling)
  Sender: FDA-Public Use
  Company Number: None

PATIENT
  Age: 69 Year
  Sex: Female
  Weight: 81.65 kg

DRUGS (1)
  1. PROLIA [Suspect]
     Active Substance: DENOSUMAB
     Indication: OSTEOPOROSIS
     Dosage: 1 SHOT EVERY 6 MONTHS  6MONTHS APART  SHOT IN ARM
     Dates: start: 20130929, end: 20140401

REACTIONS (4)
  - Neck pain [None]
  - Rheumatoid arthritis [None]
  - Pain [None]
  - Headache [None]

NARRATIVE: CASE EVENT DATE: 20130929
